FAERS Safety Report 8185014-0 (Version None)
Quarter: 2012Q1

REPORT INFORMATION
  Report Type: 
  Country: None (occurrence: None)
  Receive Date: 20120301
  Receipt Date: 20120216
  Transmission Date: 20120608
  Serious: Yes (Hospitalization)
  Sender: FDA-Public Use
  Company Number: 9039997-2012-00001

PATIENT
  Sex: Female

DRUGS (1)
  1. LEVULAN [Suspect]
     Dosage: 20 PERCENT, ONCE, TOPICAL
     Route: 061
     Dates: start: 20120201

REACTIONS (2)
  - SWELLING FACE [None]
  - ERYTHEMA [None]
